FAERS Safety Report 17543362 (Version 2)
Quarter: 2020Q1

REPORT INFORMATION
  Report Type: Spontaneous
  Country: US (occurrence: US)
  Receive Date: 20200316
  Receipt Date: 20200318
  Transmission Date: 20200409
  Serious: Yes (Other)
  Sender: FDA-Public Use
  Company Number: US-LUPIN PHARMACEUTICALS INC.-2020-01282

PATIENT
  Sex: Female
  Weight: 55.33 kg

DRUGS (3)
  1. ASPIRINE [Concomitant]
     Active Substance: ASPIRIN
     Indication: PRODUCT USED FOR UNKNOWN INDICATION
     Dosage: UNK
     Route: 048
  2. AMLODIPINE BESYLATE TABLETS USP, 5 MG [Suspect]
     Active Substance: AMLODIPINE BESYLATE
     Indication: BLOOD PRESSURE ABNORMAL
     Dosage: UNK UNK, QD
     Route: 048
     Dates: start: 2019
  3. VITAMIN D3 [Concomitant]
     Active Substance: CHOLECALCIFEROL
     Indication: VITAMIN SUPPLEMENTATION
     Dosage: UNK
     Route: 048

REACTIONS (8)
  - Dehydration [Recovered/Resolved]
  - Memory impairment [Not Recovered/Not Resolved]
  - Rib fracture [Recovered/Resolved]
  - Hypertension [Recovering/Resolving]
  - Oral disorder [Recovering/Resolving]
  - Anxiety [Recovering/Resolving]
  - Fall [Unknown]
  - Oral herpes [Recovering/Resolving]

NARRATIVE: CASE EVENT DATE: 2019
